FAERS Safety Report 13248219 (Version 1)
Quarter: 2017Q1

REPORT INFORMATION
  Report Type: Spontaneous
  Country: AR (occurrence: AR)
  Receive Date: 20170217
  Receipt Date: 20170217
  Transmission Date: 20170428
  Serious: Yes (Other)
  Sender: FDA-Public Use
  Company Number: AR-AMGEN-ARGSP2017025459

PATIENT
  Age: 60 Year
  Sex: Male

DRUGS (1)
  1. ENBREL [Suspect]
     Active Substance: ETANERCEPT
     Indication: PSORIATIC ARTHROPATHY
     Dosage: 50 MG, WEEKLY
     Route: 065
     Dates: start: 20070118

REACTIONS (6)
  - Lung disorder [Unknown]
  - Cardiac disorder [Unknown]
  - Pain [Unknown]
  - Gait disturbance [Unknown]
  - Cardiomegaly [Unknown]
  - Rash [Unknown]

NARRATIVE: CASE EVENT DATE: 201612
